FAERS Safety Report 9330564 (Version 1)
Quarter: 2013Q2

REPORT INFORMATION
  Report Type: Report from Study
  Country: US (occurrence: US)
  Receive Date: 20130605
  Receipt Date: 20130605
  Transmission Date: 20140414
  Serious: Yes (Other)
  Sender: FDA-Public Use
  Company Number: PHEH2013US011984

PATIENT
  Sex: Female
  Weight: 79.59 kg

DRUGS (5)
  1. GILENYA [Suspect]
     Indication: MULTIPLE SCLEROSIS
     Dosage: 0.5 MG, QD
     Route: 048
     Dates: start: 20120206
  2. ADORAL [Concomitant]
  3. PROVIGIL [Concomitant]
  4. CYMBALTA [Concomitant]
  5. TRAZODONE [Concomitant]

REACTIONS (2)
  - Cardiac murmur [Unknown]
  - Electrocardiogram abnormal [Unknown]
